FAERS Safety Report 4870465-X (Version None)
Quarter: 2006Q1

REPORT INFORMATION
  Report Type: 
  Country: None (occurrence: None)
  Receive Date: 20060103
  Receipt Date: 20051220
  Transmission Date: 20060701
  Serious: Yes (Other)
  Sender: FDA-Public Use
  Company Number: US-AMGEN-US162084

PATIENT
  Sex: Male

DRUGS (2)
  1. ARANESP [Suspect]
     Indication: MYELODYSPLASTIC SYNDROME
     Dates: start: 20050801
  2. HYDROXYUREA [Concomitant]

REACTIONS (2)
  - BONE MARROW FAILURE [None]
  - TREATMENT NONCOMPLIANCE [None]
